FAERS Safety Report 23255197 (Version 1)
Quarter: 2023Q4

REPORT INFORMATION
  Report Type: Spontaneous
  Country: US (occurrence: US)
  Receive Date: 20231203
  Receipt Date: 20231203
  Transmission Date: 20240110
  Serious: No
  Sender: FDA-Public Use
  Company Number: US-AMNEAL PHARMACEUTICALS-2023-AMRX-01826

PATIENT
  Sex: Female

DRUGS (3)
  1. ISOTRETINOIN [Suspect]
     Active Substance: ISOTRETINOIN
     Indication: Product used for unknown indication
     Dosage: UNK
     Route: 048
     Dates: start: 20230228, end: 20230406
  2. SPIRONOLACTONE [Concomitant]
     Active Substance: SPIRONOLACTONE
     Indication: Product used for unknown indication
     Dosage: 50 MG TABLET
     Route: 065
  3. TRETINOIN [Concomitant]
     Active Substance: TRETINOIN
     Indication: Product used for unknown indication
     Dosage: 0.025%, TOPICAL OINTMENT
     Route: 065

REACTIONS (1)
  - Anxiety [Not Recovered/Not Resolved]
